FAERS Safety Report 6410120-8 (Version None)
Quarter: 2009Q4

REPORT INFORMATION
  Report Type: 
  Country: None (occurrence: None)
  Receive Date: 20091022
  Receipt Date: 20091015
  Transmission Date: 20100525
  Serious: Yes (Other)
  Sender: FDA-Public Use
  Company Number: DE-ABBOTT-09P-062-0596485-00

PATIENT
  Age: 55 Year
  Sex: Female

DRUGS (1)
  1. EPROSARTAN-RATIOPHARM COMP FILMTABLETTEN [Suspect]
     Indication: DRUG USE FOR UNKNOWN INDICATION
     Dosage: 600MG/12.5MG DAILY
     Route: 048
     Dates: start: 20090813, end: 20090826

REACTIONS (1)
  - EPISTAXIS [None]
